FAERS Safety Report 15717855 (Version 1)
Quarter: 2018Q4

REPORT INFORMATION
  Report Type: Spontaneous
  Country: US (occurrence: US)
  Receive Date: 20181129
  Receipt Date: 20181129
  Transmission Date: 20190205
  Serious: Yes (Other)
  Sender: FDA-Public Use
  Company Number: None

PATIENT
  Age: 45 Year
  Sex: Male

DRUGS (1)
  1. SUCCINYLCHOLINE [Suspect]
     Active Substance: SUCCINYLCHOLINE
     Indication: ELECTROCONVULSIVE THERAPY
     Route: 042
     Dates: start: 20181105, end: 20181105

REACTIONS (3)
  - Hypertension [None]
  - Seizure [None]
  - Arrhythmia [None]

NARRATIVE: CASE EVENT DATE: 20181105
